FAERS Safety Report 9788975 (Version 2)
Quarter: 2014Q1

REPORT INFORMATION
  Report Type: Spontaneous
  Country: US (occurrence: US)
  Receive Date: 20131230
  Receipt Date: 20140122
  Transmission Date: 20141002
  Serious: No
  Sender: FDA-Public Use
  Company Number: US-TEVA-453769USA

PATIENT
  Sex: Female

DRUGS (1)
  1. PLAN B ONE-STEP [Suspect]
     Indication: POST COITAL CONTRACEPTION
     Dosage: 1.5 MILLIGRAM DAILY;
     Route: 048
     Dates: start: 20131218, end: 20131218

REACTIONS (7)
  - Tachycardia [Recovered/Resolved]
  - Sensation of pressure [Recovered/Resolved]
  - Pain [Recovered/Resolved]
  - Galactorrhoea [Not Recovered/Not Resolved]
  - Pelvic pain [Not Recovered/Not Resolved]
  - Breast tenderness [Recovered/Resolved]
  - Menstruation delayed [Not Recovered/Not Resolved]
